FAERS Safety Report 6255557-5 (Version None)
Quarter: 2009Q2

REPORT INFORMATION
  Report Type: 
  Country: None (occurrence: None)
  Receive Date: 20090630
  Receipt Date: 20090629
  Transmission Date: 20091009
  Serious: Yes (Hospitalization)
  Sender: FDA-Public Use
  Company Number: 2009SP012592

PATIENT
  Age: 58 Year
  Sex: Female

DRUGS (8)
  1. NOXAFIL [Suspect]
     Indication: PROPHYLAXIS
     Dosage: 200 MG;TID; PO
     Route: 048
     Dates: start: 20081129, end: 20090224
  2. DOXORUBICIN HCL [Suspect]
     Indication: T-CELL LYMPHOMA
     Dosage: 450 MG/M2; IV
     Route: 042
     Dates: start: 20080301, end: 20080701
  3. NEORAL [Concomitant]
  4. ZELITREX [Concomitant]
  5. DIFFU K [Concomitant]
  6. NEXIUM [Concomitant]
  7. SPECIAFOLDINE [Concomitant]
  8. MAGNE B6 [Concomitant]

REACTIONS (6)
  - ACUTE PULMONARY OEDEMA [None]
  - ATRIAL FIBRILLATION [None]
  - CARDIAC FAILURE CONGESTIVE [None]
  - CARDIOTOXICITY [None]
  - CONGESTIVE CARDIOMYOPATHY [None]
  - GRAFT VERSUS HOST DISEASE [None]
